FAERS Safety Report 22270420 (Version 1)
Quarter: 2023Q2

REPORT INFORMATION
  Report Type: Spontaneous
  Country: US (occurrence: US)
  Receive Date: 20230501
  Receipt Date: 20230501
  Transmission Date: 20230721
  Serious: Yes (Death, Hospitalization, Other)
  Sender: FDA-Public Use
  Company Number: US-AMGEN-USASP2023073548

PATIENT

DRUGS (3)
  1. BEVACIZUMAB [Suspect]
     Active Substance: BEVACIZUMAB
     Indication: Colorectal cancer metastatic
     Dosage: UNK
     Route: 065
  2. PANITUMUMAB [Suspect]
     Active Substance: PANITUMUMAB
     Indication: Colorectal cancer metastatic
     Dosage: UNK
     Route: 065
  3. CETUXIMAB [Concomitant]
     Active Substance: CETUXIMAB
     Indication: Colorectal cancer metastatic
     Dosage: UNK
     Route: 065

REACTIONS (16)
  - Death [Fatal]
  - Unevaluable event [Unknown]
  - Post procedural pneumonia [Unknown]
  - Hepatic failure [Unknown]
  - Ascites [Unknown]
  - Lymphatic fistula [Unknown]
  - Anastomotic leak [Unknown]
  - Post procedural myocardial infarction [Unknown]
  - Post procedural pulmonary embolism [Unknown]
  - Procedural haemorrhage [Unknown]
  - Postoperative ileus [Unknown]
  - Post procedural sepsis [Unknown]
  - Postoperative abscess [Unknown]
  - Procedural complication [Unknown]
  - Pleural effusion [Unknown]
  - Procedural pain [Unknown]
